FAERS Safety Report 13508227 (Version 1)
Quarter: 2017Q2

REPORT INFORMATION
  Report Type: Report from Study
  Country: GB (occurrence: GB)
  Receive Date: 20170503
  Receipt Date: 20170503
  Transmission Date: 20170830
  Serious: Yes (Life-Threatening)
  Sender: FDA-Public Use
  Company Number: GB-ROCHE-1909772

PATIENT
  Sex: Female

DRUGS (10)
  1. ROACTEMRA [Suspect]
     Active Substance: TOCILIZUMAB
     Indication: RHEUMATOID ARTHRITIS
     Route: 058
     Dates: start: 201606
  2. METHOTREXATE. [Concomitant]
     Active Substance: METHOTREXATE
     Route: 048
  3. PHENYTOIN. [Concomitant]
     Active Substance: PHENYTOIN
     Indication: EPILEPSY
     Route: 048
  4. LEVETIRACETAM. [Concomitant]
     Active Substance: LEVETIRACETAM
     Indication: EPILEPSY
     Route: 048
  5. LAMOTRIGIN [Concomitant]
     Active Substance: LAMOTRIGINE
     Indication: EPILEPSY
     Route: 048
  6. VENLAFAXINE [Concomitant]
     Active Substance: VENLAFAXINE HYDROCHLORIDE
     Indication: DEPRESSION
     Route: 048
  7. MIRTAZAPINE. [Concomitant]
     Active Substance: MIRTAZAPINE
     Indication: DEPRESSION
     Route: 048
  8. DIAZEPAM. [Concomitant]
     Active Substance: DIAZEPAM
     Indication: EPILEPSY
     Route: 048
  9. OLANZAPINE. [Concomitant]
     Active Substance: OLANZAPINE
     Indication: DEPRESSION
     Route: 048
  10. THYROXINE [Concomitant]
     Active Substance: LEVOTHYROXINE
     Route: 048

REACTIONS (3)
  - Depressed mood [Unknown]
  - Anxiety [Unknown]
  - Suicide attempt [Recovered/Resolved with Sequelae]
